FAERS Safety Report 7111122-9 (Version None)
Quarter: 2010Q4

REPORT INFORMATION
  Report Type: 
  Country: None (occurrence: None)
  Receive Date: 20101118
  Receipt Date: 20101012
  Transmission Date: 20110411
  Serious: Yes (Hospitalization)
  Sender: FDA-Public Use
  Company Number: JP-AMGEN-US387221

PATIENT

DRUGS (32)
  1. ENBREL [Suspect]
     Dosage: 50 MG, UNK
     Route: 058
     Dates: start: 20051202, end: 20080913
  2. ENBREL [Suspect]
     Dosage: 50 MG, QWK
     Route: 058
     Dates: start: 20080917, end: 20100101
  3. ENBREL [Suspect]
     Dosage: LYOPHILIZED 50 MG/WK
     Route: 058
     Dates: start: 20051202, end: 20080913
  4. PREDNISOLONE [Suspect]
     Indication: RHEUMATOID ARTHRITIS
     Route: 048
  5. RHEUMATREX [Suspect]
     Indication: RHEUMATOID ARTHRITIS
     Dates: start: 20010301
  6. RHEUMATREX [Suspect]
     Dosage: 2 MG UNSPECIFIED FREQUENCY
     Route: 048
  7. GLIMEPIRIDE [Concomitant]
     Dosage: 1 MG, QD
     Route: 048
  8. SENNOSIDE [Concomitant]
     Dosage: UNK UNK, UNK
     Route: 048
  9. TERBINAFINE HCL [Concomitant]
     Dosage: UNK UNK, UNK
  10. DICLOFENAC SODIUM [Concomitant]
     Dosage: UNK UNK, UNK
     Route: 048
  11. LANOCONAZOLE [Concomitant]
     Indication: TINEA PEDIS
     Dosage: UNK UNK, UNK
  12. LANOCONAZOLE [Concomitant]
     Dosage: (TO) LIQ
  13. LORATADINE [Concomitant]
     Dosage: 20 MG, QD
     Route: 048
  14. THYRADIN [Concomitant]
     Indication: HYPOTHYROIDISM
     Dosage: 50 A?G, QD
     Route: 048
  15. MEXILETINE HYDROCHLORIDE [Concomitant]
     Dosage: 50 MG, QD
     Route: 048
  16. PREDNISOLONE [Concomitant]
     Dosage: 5 MG, QD
     Route: 048
  17. AMLODIPINE BESYLATE [Concomitant]
     Dosage: 5 MG, QD
     Route: 048
  18. MELOXICAM [Concomitant]
     Dosage: 10 MG, QD
     Route: 048
  19. RABEPRAZOLE SODIUM [Concomitant]
     Dosage: 20 MG, QD
     Route: 048
  20. ISONIAZID [Concomitant]
     Dosage: 200 MG, QD
     Route: 048
  21. ROSUVASTATIN CALCIUM [Concomitant]
     Dosage: 2.5 MG, QD
     Route: 048
  22. BERIZYM [Concomitant]
     Indication: DYSPEPSIA
     Dosage: UNK UNK, UNK
     Route: 048
  23. BERIZYM [Concomitant]
     Dosage: 1 DF/DAY
     Route: 048
  24. METHOTREXATE [Concomitant]
     Dosage: 8 MG, QWK
     Dates: start: 20010301
  25. METHOTREXATE [Concomitant]
     Dosage: 2 MG, UNK
     Route: 048
  26. EPADEL [Concomitant]
     Indication: HYPERLIPIDAEMIA
     Dosage: 1800 MG, QD
     Route: 048
  27. EPADEL [Concomitant]
     Dosage: 1800 MG/DAY
     Route: 048
  28. CATLEP [Concomitant]
     Indication: RHEUMATOID ARTHRITIS
     Dosage: UNK UNK, UNK
     Route: 048
  29. CATLEP [Concomitant]
     Dosage: UNSPECIFIED
     Route: 048
  30. TRICHLORMETHIAZIDE [Concomitant]
     Dosage: UNK UNK, UNK
     Route: 048
  31. CROTAMITON [Concomitant]
     Dosage: UNK UNK, UNK
  32. NIFEDIPINE [Concomitant]
     Dosage: UNK UNK, UNK
     Route: 048

REACTIONS (9)
  - ALTERED STATE OF CONSCIOUSNESS [None]
  - DISSEMINATED INTRAVASCULAR COAGULATION [None]
  - FALL [None]
  - HIP FRACTURE [None]
  - INCISION SITE HAEMORRHAGE [None]
  - OPPORTUNISTIC INFECTION [None]
  - PANCYTOPENIA [None]
  - SEPSIS [None]
  - STAPHYLOCOCCUS TEST POSITIVE [None]
